FAERS Safety Report 4830991-6 (Version None)
Quarter: 2005Q4

REPORT INFORMATION
  Report Type: 
  Country: None (occurrence: None)
  Receive Date: 20051115
  Receipt Date: 20051115
  Transmission Date: 20060501
  Serious: Yes (Other)
  Sender: FDA-Public Use
  Company Number: None

PATIENT
  Age: 79 Year
  Sex: Male

DRUGS (1)
  1. ARGLAES POWDER [Suspect]
     Indication: PROMOTION OF WOUND HEALING
     Dosage: TOPICAL BID
     Route: 061
     Dates: start: 20051107, end: 20051109

REACTIONS (1)
  - RASH [None]
